FAERS Safety Report 19410341 (Version 1)
Quarter: 2021Q2

REPORT INFORMATION
  Report Type: Spontaneous
  Country: US (occurrence: US)
  Receive Date: 20210611
  Receipt Date: 20210611
  Transmission Date: 20210717
  Serious: Yes (Death)
  Sender: FDA-Public Use
  Company Number: None

PATIENT
  Age: 62 Year
  Sex: Male

DRUGS (2)
  1. TACROLIMUS. [Suspect]
     Active Substance: TACROLIMUS
     Indication: RENAL TRANSPLANT
     Route: 048
     Dates: start: 20140425, end: 20210611
  2. MYCOPHENOLIC 360MG [Concomitant]
     Active Substance: MYCOPHENOLIC ACID

REACTIONS (1)
  - Death [None]

NARRATIVE: CASE EVENT DATE: 20210611
